FAERS Safety Report 12200060 (Version 1)
Quarter: 2016Q1

REPORT INFORMATION
  Report Type: Spontaneous
  Country: FR (occurrence: FR)
  Receive Date: 20160322
  Receipt Date: 20160322
  Transmission Date: 20160526
  Serious: Yes (Death)
  Sender: FDA-Public Use
  Company Number: FR-CONCORDIA PHARMACEUTICALS INC.-CO-PL-FR-2016-109

PATIENT
  Sex: Male

DRUGS (7)
  1. CORTANCYL [Suspect]
     Active Substance: PREDNISONE
     Indication: SYSTEMIC LUPUS ERYTHEMATOSUS
     Route: 064
     Dates: start: 20150809, end: 20151215
  2. MOPRAL [Suspect]
     Active Substance: OMEPRAZOLE SODIUM
     Indication: GASTROOESOPHAGEAL REFLUX DISEASE
     Route: 064
     Dates: start: 20150809, end: 20151215
  3. ASPEGIC NOURRISSONS [Suspect]
     Active Substance: ASPIRIN LYSINE
     Indication: SYSTEMIC LUPUS ERYTHEMATOSUS
     Route: 064
     Dates: start: 20150809, end: 20151215
  4. COUMADINE [Suspect]
     Active Substance: WARFARIN SODIUM
     Indication: MITRAL VALVE REPLACEMENT
     Route: 064
     Dates: start: 20150809, end: 20151005
  5. PLAQUENIL [Suspect]
     Active Substance: HYDROXYCHLOROQUINE SULFATE
     Indication: SYSTEMIC LUPUS ERYTHEMATOSUS
     Route: 064
     Dates: start: 20150809, end: 20151215
  6. CACIT [Suspect]
     Active Substance: CALCIUM\VITAMIN D
     Indication: OSTEOPOROSIS PROPHYLAXIS
     Route: 064
     Dates: start: 20150809, end: 20151215
  7. XANAX [Suspect]
     Active Substance: ALPRAZOLAM
     Indication: ANXIETY DISORDER
     Route: 065
     Dates: start: 20150809, end: 20151215

REACTIONS (3)
  - Foetal exposure during pregnancy [None]
  - Dandy-Walker syndrome [None]
  - Congenital central nervous system anomaly [None]

NARRATIVE: CASE EVENT DATE: 20151201
